FAERS Safety Report 7795120-8 (Version None)
Quarter: 2011Q4

REPORT INFORMATION
  Report Type: 
  Country: None (occurrence: None)
  Receive Date: 20111003
  Receipt Date: 20111003
  Transmission Date: 20120403
  Serious: Yes (Hospitalization)
  Sender: FDA-Public Use
  Company Number: None

PATIENT
  Age: 53 Year
  Sex: Male
  Weight: 72.7 kg

DRUGS (1)
  1. CLONAZEPAM [Suspect]
     Indication: PNEUMONIA
     Dosage: 0.5 MG ONCE PO
     Route: 048
     Dates: start: 20110620, end: 20110620

REACTIONS (5)
  - UNRESPONSIVE TO STIMULI [None]
  - MENTAL STATUS CHANGES [None]
  - RESPIRATORY FAILURE [None]
  - HYPOVENTILATION [None]
  - SOMNOLENCE [None]
